FAERS Safety Report 7215171-1 (Version None)
Quarter: 2011Q1

REPORT INFORMATION
  Report Type: 
  Country: None (occurrence: None)
  Receive Date: 20110107
  Receipt Date: 20101203
  Transmission Date: 20110831
  Serious: No
  Sender: FDA-Public Use
  Company Number: A0884607A

PATIENT
  Sex: Female

DRUGS (1)
  1. LOVAZA [Suspect]
     Dosage: 2CAP TWICE PER DAY
     Dates: start: 20100701

REACTIONS (2)
  - PRODUCT QUALITY ISSUE [None]
  - MEDICATION RESIDUE [None]
